FAERS Safety Report 4693647-9 (Version None)
Quarter: 2005Q2

REPORT INFORMATION
  Report Type: 
  Country: None (occurrence: None)
  Receive Date: 20050616
  Receipt Date: 20050531
  Transmission Date: 20051028
  Serious: No
  Sender: FDA-Public Use
  Company Number: 11396

PATIENT
  Sex: Female

DRUGS (2)
  1. EPIRUBICIN [Suspect]
     Indication: BREAST CANCER
     Dosage: 90 MG/M2 PER_CYCLE IV
     Route: 042
  2. PACLITAXEL [Suspect]
     Indication: BREAST CANCER
     Dosage: 200 MG/M2 PER_CYCLE IV
     Route: 042

REACTIONS (1)
  - EJECTION FRACTION DECREASED [None]
